FAERS Safety Report 4904242-8 (Version None)
Quarter: 2006Q1

REPORT INFORMATION
  Report Type: 
  Country: None (occurrence: None)
  Receive Date: 20060208
  Receipt Date: 20050815
  Transmission Date: 20060701
  Serious: Yes (Other)
  Sender: FDA-Public Use
  Company Number: US-GLAXOSMITHKLINE-A0570274A

PATIENT
  Age: 55 Year
  Sex: Male

DRUGS (2)
  1. PAXIL [Suspect]
     Indication: OBSESSIVE-COMPULSIVE DISORDER
     Route: 048
     Dates: start: 20050701
  2. HERBS [Concomitant]
     Route: 065

REACTIONS (5)
  - DRUG INEFFECTIVE [None]
  - HYPOTHYROIDISM [None]
  - OEDEMA PERIPHERAL [None]
  - RASH [None]
  - VISION BLURRED [None]
